FAERS Safety Report 5258974-5 (Version None)
Quarter: 2007Q1

REPORT INFORMATION
  Report Type: 
  Country: None (occurrence: None)
  Receive Date: 20070308
  Receipt Date: 20070227
  Transmission Date: 20070707
  Serious: Yes (Death)
  Sender: FDA-Public Use
  Company Number: FR-ROCHE-485130

PATIENT
  Age: 72 Year
  Sex: Male

DRUGS (2)
  1. TAMIFLU [Suspect]
     Route: 048
     Dates: start: 20070220, end: 20070222
  2. SEREVENT [Concomitant]
     Indication: ASTHMA

REACTIONS (1)
  - ASTHMATIC CRISIS [None]
